FAERS Safety Report 8609687-0 (Version None)
Quarter: 2012Q3

REPORT INFORMATION
  Report Type: 
  Country: None (occurrence: None)
  Receive Date: 20120821
  Receipt Date: 20120817
  Transmission Date: 20120928
  Serious: Yes (Other)
  Sender: FDA-Public Use
  Company Number: NL-PFIZER INC-2012202723

PATIENT
  Age: 45 Year
  Sex: Female
  Weight: 80 kg

DRUGS (6)
  1. DIAZEPAM [Suspect]
     Dosage: UNK
     Dates: start: 20090903
  2. VENLAFAXINE HCL [Suspect]
     Dosage: 150 MG, UNK
  3. DIAZEPAM [Suspect]
     Dosage: UNK
     Dates: start: 20090903
  4. VENLAFAXINE HCL [Suspect]
     Dosage: 120 MG, UNK
  5. VENLAFAXINE HCL [Suspect]
     Dosage: 37 MG, UNK
     Dates: start: 20100415
  6. VENLAFAXINE HCL [Suspect]
     Dosage: 75 MG, UNK

REACTIONS (8)
  - HYPERTONIA [None]
  - VISION BLURRED [None]
  - JOINT STIFFNESS [None]
  - MUSCLE DISORDER [None]
  - MYALGIA [None]
  - GAIT DISTURBANCE [None]
  - PUPILS UNEQUAL [None]
  - BALANCE DISORDER [None]
